FAERS Safety Report 8228594-9 (Version None)
Quarter: 2012Q1

REPORT INFORMATION
  Report Type: 
  Country: None (occurrence: None)
  Receive Date: 20120322
  Receipt Date: 20110322
  Transmission Date: 20120608
  Serious: Yes (Other)
  Sender: FDA-Public Use
  Company Number: US-BRISTOL-MYERS SQUIBB COMPANY-15625528

PATIENT
  Sex: Male

DRUGS (1)
  1. ERBITUX [Suspect]
     Indication: COLORECTAL CANCER
     Route: 042
     Dates: start: 20110223

REACTIONS (5)
  - ERYTHEMA [None]
  - DYSPNOEA [None]
  - FLUSHING [None]
  - BLOOD PRESSURE INCREASED [None]
  - HEART RATE INCREASED [None]
